FAERS Safety Report 15739855 (Version 1)
Quarter: 2018Q4

REPORT INFORMATION
  Report Type: Report from Study
  Country: CA (occurrence: CA)
  Receive Date: 20181219
  Receipt Date: 20181219
  Transmission Date: 20190205
  Serious: Yes (Other)
  Sender: FDA-Public Use
  Company Number: CA-SA-2016SA226288

PATIENT
  Age: 42 Year
  Sex: Male

DRUGS (18)
  1. VOLTARENE (DICLOFENAC SODIUM) [Concomitant]
     Active Substance: DICLOFENAC SODIUM
     Dosage: UNK UNK, PRN
     Route: 065
  2. OXYCODONE [Concomitant]
     Active Substance: OXYCODONE
     Dosage: 10 MG, BID
     Route: 048
  3. VANDETANIB. [Suspect]
     Active Substance: VANDETANIB
     Dosage: 300 MG,QD
     Route: 048
     Dates: start: 20140718
  4. VANDETANIB. [Suspect]
     Active Substance: VANDETANIB
     Dosage: 300 MG,QD
     Route: 048
     Dates: start: 20140718
  5. CALCIUM [Concomitant]
     Active Substance: CALCIUM
     Dosage: 500 MG,BID
     Route: 048
  6. SYNTHROID [Concomitant]
     Active Substance: LEVOTHYROXINE SODIUM
     Dosage: 0.2 MG,QD
     Route: 048
     Dates: end: 2017
  7. PAMIDRONATE DISODIUM. [Concomitant]
     Active Substance: PAMIDRONATE DISODIUM
     Dosage: Q 3 MONTHS
     Route: 042
  8. ROCALTROL [Concomitant]
     Active Substance: CALCITRIOL
     Dosage: 0.25 MG, BID 2 TABS ONCE A DAY,
     Route: 065
  9. SYNTHROID [Concomitant]
     Active Substance: LEVOTHYROXINE SODIUM
     Dosage: QD
     Route: 048
     Dates: start: 2017
  10. LOPERAMIDE [Concomitant]
     Active Substance: LOPERAMIDE
     Dosage: 2 MG,PRN
     Route: 048
  11. VANDETANIB. [Suspect]
     Active Substance: VANDETANIB
     Dosage: 300 MG, QD
     Route: 048
     Dates: start: 2011
  12. ROCALTROL [Concomitant]
     Active Substance: CALCITRIOL
     Dosage: 2 DF,QD
     Route: 048
  13. AMITRIPTYLINE [Concomitant]
     Active Substance: AMITRIPTYLINE
     Dosage: 25 MG,QD
     Route: 048
  14. FONDAPARINUX [Concomitant]
     Active Substance: FONDAPARINUX
     Dosage: 2.5 MG,QD
     Route: 058
  15. OXYCODONE [Concomitant]
     Active Substance: OXYCODONE
     Dosage: 5 MG, PRN
     Route: 048
  16. VANDETANIB. [Suspect]
     Active Substance: VANDETANIB
     Indication: MEDULLARY THYROID CANCER
     Dosage: 300 MG,QD
     Route: 048
     Dates: start: 20110101
  17. VANDETANIB. [Suspect]
     Active Substance: VANDETANIB
     Dosage: 300 MG,QD
     Route: 048
     Dates: start: 20110101
  18. APO-TRAMADOL/ACET [Concomitant]
     Active Substance: ACETAMINOPHEN\TRAMADOL HYDROCHLORIDE
     Dosage: PRN
     Route: 048

REACTIONS (8)
  - Cardiac ventricular disorder [Recovered/Resolved]
  - Diarrhoea [Not Recovered/Not Resolved]
  - Apathy [Unknown]
  - Depression [Unknown]
  - Pain in extremity [Unknown]
  - Fatigue [Unknown]
  - Transient ischaemic attack [Recovered/Resolved]
  - Product dose omission [Unknown]

NARRATIVE: CASE EVENT DATE: 20110101
